FAERS Safety Report 7655153-9 (Version None)
Quarter: 2011Q3

REPORT INFORMATION
  Report Type: 
  Country: None (occurrence: None)
  Receive Date: 20110804
  Receipt Date: 20110729
  Transmission Date: 20111222
  Serious: No
  Sender: FDA-Public Use
  Company Number: US-PFIZER INC-2011173365

PATIENT
  Sex: Female
  Weight: 79.365 kg

DRUGS (3)
  1. NORVASC [Concomitant]
     Indication: HYPERTENSION
     Dosage: 10 MG, DAILY
     Route: 048
  2. ADVIL LIQUI-GELS [Suspect]
     Indication: ARTHRITIS
     Dosage: 200 MG, AS NEEDED
     Route: 048
  3. ACETYLSALICYLIC ACID SRT [Suspect]
     Dosage: 81 MG, DAILY
     Route: 048

REACTIONS (1)
  - HOT FLUSH [None]
